FAERS Safety Report 13885035 (Version 1)
Quarter: 2017Q3

REPORT INFORMATION
  Report Type: Report from Study
  Country: None (occurrence: US)
  Receive Date: 20170821
  Receipt Date: 20170821
  Transmission Date: 20171127
  Serious: Yes (Hospitalization, Other)
  Sender: FDA-Public Use
  Company Number: US-ABBVIE-17K-163-1967421-00

PATIENT
  Age: 56 Year
  Sex: Female

DRUGS (13)
  1. ATENOLOL. [Concomitant]
     Active Substance: ATENOLOL
     Indication: HYPERTENSION
  2. CYMBALTA [Concomitant]
     Active Substance: DULOXETINE HYDROCHLORIDE
     Indication: DEPRESSION
  3. SIMVASTATIN. [Concomitant]
     Active Substance: SIMVASTATIN
     Indication: BLOOD CHOLESTEROL INCREASED
  4. VITAMIN D [Concomitant]
     Active Substance: CHOLECALCIFEROL
     Indication: VITAMIN D DECREASED
  5. LYRICA [Concomitant]
     Active Substance: PREGABALIN
     Indication: NEUROPATHY PERIPHERAL
  6. BACLOFEN. [Concomitant]
     Active Substance: BACLOFEN
     Indication: MUSCLE SPASMS
  7. LYRICA [Concomitant]
     Active Substance: PREGABALIN
     Indication: FIBROMYALGIA
  8. HUMALOG [Concomitant]
     Active Substance: INSULIN LISPRO
     Indication: TYPE 2 DIABETES MELLITUS
  9. HUMIRA [Suspect]
     Active Substance: ADALIMUMAB
     Indication: CROHN^S DISEASE
     Route: 058
     Dates: start: 2015
  10. GLIMEPIRIDE. [Concomitant]
     Active Substance: GLIMEPIRIDE
     Indication: TYPE 2 DIABETES MELLITUS
  11. CYMBALTA [Concomitant]
     Active Substance: DULOXETINE HYDROCHLORIDE
     Indication: PLANTAR FASCIITIS
  12. LOSARTAN. [Concomitant]
     Active Substance: LOSARTAN
     Indication: HYPERTENSION
  13. LANTUS [Concomitant]
     Active Substance: INSULIN GLARGINE
     Indication: TYPE 2 DIABETES MELLITUS

REACTIONS (27)
  - Hallucination [Recovered/Resolved]
  - Dehydration [Recovered/Resolved]
  - Arterial occlusive disease [Unknown]
  - Basal cell carcinoma [Recovered/Resolved]
  - Oedema [Recovering/Resolving]
  - Chromaturia [Recovered/Resolved]
  - Urinary tract infection [Recovering/Resolving]
  - Oxygen saturation decreased [Recovered/Resolved]
  - Skin cancer [Not Recovered/Not Resolved]
  - Cellulitis [Recovering/Resolving]
  - Sepsis [Recovered/Resolved]
  - Skin abrasion [Recovering/Resolving]
  - Renal failure [Recovering/Resolving]
  - Pyrexia [Recovered/Resolved]
  - Amnesia [Recovering/Resolving]
  - White blood cell count increased [Recovered/Resolved]
  - Hypotension [Recovered/Resolved]
  - Squamous cell carcinoma of skin [Recovered/Resolved]
  - Pain [Recovering/Resolving]
  - Pain [Recovered/Resolved]
  - Diarrhoea [Unknown]
  - Pollakiuria [Not Recovered/Not Resolved]
  - Respiratory failure [Recovered/Resolved]
  - Drug effect decreased [Unknown]
  - Skin texture abnormal [Recovered/Resolved]
  - Skin discolouration [Recovering/Resolving]
  - Precancerous skin lesion [Recovered/Resolved]

NARRATIVE: CASE EVENT DATE: 2016
